FAERS Safety Report 15630264 (Version 1)
Quarter: 2018Q4

REPORT INFORMATION
  Report Type: Spontaneous
  Country: US (occurrence: US)
  Receive Date: 20181117
  Receipt Date: 20181117
  Transmission Date: 20190205
  Serious: No
  Sender: FDA-Public Use
  Company Number: None

PATIENT
  Age: 37 Year
  Sex: Female
  Weight: 53.1 kg

DRUGS (2)
  1. LATISSE [Suspect]
     Active Substance: BIMATOPROST
     Indication: GROWTH OF EYELASHES
     Dosage: ?          OTHER STRENGTH:W/V;QUANTITY:1 DROP(S); BEDTIME?
     Route: 061
  2. FLUOXETINE [Concomitant]
     Active Substance: FLUOXETINE HYDROCHLORIDE

REACTIONS (4)
  - Dry skin [None]
  - Eye swelling [None]
  - Erythema [None]
  - Instillation site pain [None]

NARRATIVE: CASE EVENT DATE: 20181117
